FAERS Safety Report 7678366-9 (Version None)
Quarter: 2011Q3

REPORT INFORMATION
  Report Type: 
  Country: None (occurrence: None)
  Receive Date: 20110811
  Receipt Date: 20110803
  Transmission Date: 20111222
  Serious: Yes (Other)
  Sender: FDA-Public Use
  Company Number: US-TEVA-294645USA

PATIENT
  Sex: Female

DRUGS (4)
  1. INTERFERON BETA-1A [Suspect]
  2. INTERFERON BETA NOS [Suspect]
  3. COPAXONE [Suspect]
     Indication: MULTIPLE SCLEROSIS
     Route: 058
  4. NATALIZUMAB [Suspect]

REACTIONS (8)
  - BALANCE DISORDER [None]
  - FALL [None]
  - EYE DISORDER [None]
  - HAEMORRHAGE [None]
  - GAIT DISTURBANCE [None]
  - BLADDER DISORDER [None]
  - BONE DISORDER [None]
  - DRUG INEFFECTIVE [None]
